FAERS Safety Report 18853617 (Version 1)
Quarter: 2021Q1

REPORT INFORMATION
  Report Type: Spontaneous
  Country: US (occurrence: US)
  Receive Date: 20210205
  Receipt Date: 20210205
  Transmission Date: 20210420
  Serious: No
  Sender: FDA-Public Use
  Company Number: US-VIIV HEALTHCARE LIMITED-US2021018326

PATIENT
  Sex: Male

DRUGS (1)
  1. TRIUMEQ [Suspect]
     Active Substance: ABACAVIR SULFATE\DOLUTEGRAVIR SODIUM\LAMIVUDINE
     Indication: PRODUCT USED FOR UNKNOWN INDICATION
     Dosage: UNK

REACTIONS (14)
  - Yellow skin [Unknown]
  - Dizziness [Unknown]
  - Fatigue [Unknown]
  - Dyspnoea [Unknown]
  - Vomiting [Unknown]
  - Decreased appetite [Unknown]
  - Abdominal tenderness [Unknown]
  - Asthenia [Unknown]
  - Nausea [Unknown]
  - Chromaturia [Unknown]
  - Liver disorder [Unknown]
  - Myalgia [Unknown]
  - Ocular icterus [Unknown]
  - Abdominal pain upper [Unknown]
